FAERS Safety Report 7688439-2 (Version None)
Quarter: 2011Q3

REPORT INFORMATION
  Report Type: 
  Country: None (occurrence: None)
  Receive Date: 20110817
  Receipt Date: 20110808
  Transmission Date: 20111222
  Serious: Yes (Other)
  Sender: FDA-Public Use
  Company Number: FI-ROCHE-795687

PATIENT
  Age: 65 Year
  Sex: Female

DRUGS (2)
  1. BEVACIZUMAB [Suspect]
     Dosage: FORM: INFUSION
     Route: 065
  2. PACLITAXEL [Suspect]
     Dosage: ON DAYS 1, 8 AND 15 OF A 28-DAY CYCLE. FORM: INFUSION
     Route: 065

REACTIONS (1)
  - CUTANEOUS LUPUS ERYTHEMATOSUS [None]
